FAERS Safety Report 7321880-6 (Version None)
Quarter: 2011Q1

REPORT INFORMATION
  Report Type: 
  Country: None (occurrence: None)
  Receive Date: 20110216
  Receipt Date: 20110203
  Transmission Date: 20110831
  Serious: Yes (Hospitalization)
  Sender: FDA-Public Use
  Company Number: 2011000552

PATIENT
  Age: 87 Year
  Sex: Female

DRUGS (1)
  1. TARCEVA [Suspect]
     Indication: LUNG NEOPLASM MALIGNANT
     Dosage: 25 MG,X2 QD, ORAL
     Route: 048
     Dates: start: 20100929

REACTIONS (1)
  - INTRA-ABDOMINAL HAEMORRHAGE [None]
